FAERS Safety Report 9847218 (Version 1)
Quarter: 2014Q1

REPORT INFORMATION
  Report Type: Spontaneous
  Country: CO (occurrence: CO)
  Receive Date: 20140127
  Receipt Date: 20140127
  Transmission Date: 20141002
  Serious: Yes (Death, Hospitalization)
  Sender: FDA-Public Use
  Company Number: CO-PFIZER INC-2014024151

PATIENT
  Age: 72 Year
  Sex: Male

DRUGS (1)
  1. EFEXOR [Suspect]
     Dosage: 150 MG, 1X/DAY
     Route: 048

REACTIONS (3)
  - Prostate cancer [Fatal]
  - Prostate cancer metastatic [Fatal]
  - Tongue exfoliation [Unknown]
